FAERS Safety Report 21781031 (Version 1)
Quarter: 2022Q4

REPORT INFORMATION
  Report Type: Spontaneous
  Country: RU (occurrence: RU)
  Receive Date: 20221227
  Receipt Date: 20221227
  Transmission Date: 20230113
  Serious: Yes (Hospitalization, Other)
  Sender: FDA-Public Use
  Company Number: RU-SA-2022SA518358

PATIENT
  Age: 51 Year
  Sex: Female
  Weight: 105 kg

DRUGS (5)
  1. TOUJEO [Suspect]
     Active Substance: INSULIN GLARGINE
     Dosage: 56 IU
     Dates: start: 20211008, end: 20211015
  2. ACNECUTAN [Concomitant]
     Indication: Pyoderma
     Dosage: UNK
  3. NOVORAPID [Concomitant]
     Active Substance: INSULIN ASPART
  4. DIVINA [DROSPIRENONE;ETHINYLESTRADIOL] [Concomitant]
     Indication: Pyoderma
     Dosage: UNK
  5. LANTUS [Concomitant]
     Active Substance: INSULIN GLARGINE
     Dosage: 56 IU

REACTIONS (5)
  - Diabetic metabolic decompensation [Unknown]
  - Pyoderma [Unknown]
  - Condition aggravated [Unknown]
  - Actinomycosis [Unknown]
  - Glycosylated haemoglobin increased [Unknown]

NARRATIVE: CASE EVENT DATE: 20211001
